FAERS Safety Report 22218519 (Version 2)
Quarter: 2023Q2

REPORT INFORMATION
  Report Type: Report from Study
  Country: CA (occurrence: CA)
  Receive Date: 20230417
  Receipt Date: 20230522
  Transmission Date: 20230722
  Serious: Yes (Death, Other)
  Sender: FDA-Public Use
  Company Number: CA-AstraZeneca-2023A085585

PATIENT
  Age: 63 Year
  Sex: Female

DRUGS (1)
  1. ENHERTU [Suspect]
     Active Substance: FAM-TRASTUZUMAB DERUXTECAN-NXKI
     Indication: Breast cancer metastatic
     Dosage: 410 MG, ONCE EVERY 3 WK
     Route: 042
     Dates: start: 20230228

REACTIONS (1)
  - Death [Fatal]

NARRATIVE: CASE EVENT DATE: 20230406
